FAERS Safety Report 5147055-7 (Version None)
Quarter: 2006Q4

REPORT INFORMATION
  Report Type: 
  Country: None (occurrence: None)
  Receive Date: 20061103
  Receipt Date: 20061011
  Transmission Date: 20070319
  Serious: Yes (Hospitalization)
  Sender: FDA-Public Use
  Company Number: 2006131216

PATIENT
  Age: 67 Year
  Sex: Female

DRUGS (36)
  1. HALCION [Suspect]
     Indication: INSOMNIA
     Dosage: 0.25 MG, ORAL
     Route: 048
  2. DILTIAZEM [Suspect]
     Indication: HYPERTENSION
     Dosage: 90 MG, ORAL
     Route: 048
  3. SELBEX (TEPRENONE) [Suspect]
     Indication: GASTRIC ULCER
     Dosage: 150 MG, ORAL
     Route: 048
  4. REMICADE [Suspect]
     Indication: RHEUMATOID ARTHRITIS
     Dosage: SEE IMAGE
     Route: 042
     Dates: start: 20050113, end: 20050113
  5. REMICADE [Suspect]
     Indication: RHEUMATOID ARTHRITIS
     Dosage: SEE IMAGE
     Route: 042
     Dates: start: 20050127, end: 20050127
  6. REMICADE [Suspect]
     Indication: RHEUMATOID ARTHRITIS
     Dosage: SEE IMAGE
     Route: 042
     Dates: start: 20050224, end: 20050224
  7. REMICADE [Suspect]
     Indication: RHEUMATOID ARTHRITIS
     Dosage: SEE IMAGE
     Route: 042
     Dates: start: 20050421, end: 20050421
  8. REMICADE [Suspect]
     Indication: RHEUMATOID ARTHRITIS
     Dosage: SEE IMAGE
     Route: 042
     Dates: start: 20050616, end: 20050616
  9. REMICADE [Suspect]
     Indication: RHEUMATOID ARTHRITIS
     Dosage: SEE IMAGE
     Route: 042
     Dates: start: 20050811, end: 20050811
  10. REMICADE [Suspect]
     Indication: RHEUMATOID ARTHRITIS
     Dosage: SEE IMAGE
     Route: 042
     Dates: start: 20051006, end: 20051006
  11. REMICADE [Suspect]
     Indication: RHEUMATOID ARTHRITIS
     Dosage: SEE IMAGE
     Route: 042
     Dates: start: 20051201, end: 20051201
  12. REMICADE [Suspect]
     Indication: RHEUMATOID ARTHRITIS
     Dosage: SEE IMAGE
     Route: 042
     Dates: start: 20060127, end: 20060127
  13. REMICADE [Suspect]
     Indication: RHEUMATOID ARTHRITIS
     Dosage: SEE IMAGE
     Route: 042
     Dates: start: 20060322, end: 20060322
  14. REMICADE [Suspect]
     Indication: RHEUMATOID ARTHRITIS
     Dosage: SEE IMAGE
     Route: 042
     Dates: start: 20060518, end: 20060518
  15. REMICADE [Suspect]
     Indication: RHEUMATOID ARTHRITIS
     Dosage: SEE IMAGE
     Route: 042
     Dates: start: 20060713, end: 20060713
  16. ALFAROL (ALFACALCIDOL) [Suspect]
     Indication: OSTEOPOROSIS
     Dosage: 0.5 MCG, ORAL
     Route: 048
  17. MEILAX (ETHYL LOFLAZEPATE) [Suspect]
     Indication: AUTONOMIC NERVOUS SYSTEM IMBALANCE
     Dosage: 2 MG, ORAL
     Route: 048
  18. CALCIUM LACTATE (CALCIUM LACTATE) [Suspect]
     Indication: OSTEOPOROSIS
     Dosage: 9 GRAM, ORAL
     Route: 048
  19. VIT K CAP [Suspect]
     Indication: OSTEOPOROSIS
     Dosage: 15 MG, ORAL
     Route: 048
  20. PREDNISOLONE [Suspect]
     Indication: RHEUMATOID ARTHRITIS
     Dosage: 2 MG, ORAL
     Route: 048
  21. LANSOPRAZOLE [Suspect]
     Indication: REFLUX OESOPHAGITIS
     Dosage: 15 MG, ORAL
     Route: 048
  22. BUFFERIN 81MG (ACETYLSALICYLIC ACID, ALUMINIUM GLYCINATE, MAGNESIUM CA [Suspect]
     Dosage: 81 MG, ORAL
     Route: 048
  23. VOLTAREN [Suspect]
     Indication: PAIN
     Dosage: 50 MG, RECTAL
     Route: 054
  24. NAPAGELN          (FELBINAC) [Suspect]
     Indication: PAIN
     Dosage: ADEQUATE DOSE, TOPICAL
     Route: 061
  25. ZYRTEC [Suspect]
     Indication: URTICARIA
     Dosage: 10 MG, ORAL
     Route: 048
  26. FUNGIZONE [Suspect]
     Indication: ORAL CANDIDIASIS
     Dosage: ADEQUATE DOSE
  27. RHEUMATREX [Suspect]
     Indication: RHEUMATOID ARTHRITIS
     Dosage: SEE IMAGE
     Route: 048
     Dates: start: 20030902, end: 20031208
  28. RHEUMATREX [Suspect]
     Indication: RHEUMATOID ARTHRITIS
     Dosage: SEE IMAGE
     Route: 048
     Dates: start: 20031209, end: 20040816
  29. RHEUMATREX [Suspect]
     Indication: RHEUMATOID ARTHRITIS
     Dosage: SEE IMAGE
     Route: 048
     Dates: start: 20040817, end: 20050323
  30. RHEUMATREX [Suspect]
     Indication: RHEUMATOID ARTHRITIS
     Dosage: SEE IMAGE
     Route: 048
     Dates: start: 20050324, end: 20060713
  31. FOLIC ACID [Suspect]
     Indication: ADVERSE DRUG REACTION
     Dosage: 1 TAB, ORAL
     Route: 048
  32. PRAVASTATIN [Suspect]
     Indication: HYPERCHOLESTEROLAEMIA
     Dosage: 10 MG, ORAL
     Route: 048
  33. CALONAL (PARACETAMOL) [Suspect]
     Dosage: 400 MG, ORAL
     Route: 048
     Dates: start: 20060518, end: 20060518
  34. CALONAL (PARACETAMOL) [Suspect]
     Dosage: 400 MG, ORAL
     Route: 048
     Dates: start: 20060713, end: 20060713
  35. ALLEGRA [Suspect]
     Dosage: 60 MG, ORAL
     Route: 048
     Dates: start: 20060518, end: 20060518
  36. ALLEGRA [Suspect]
     Dosage: 60 MG, ORAL
     Route: 048
     Dates: start: 20060713, end: 20060713

REACTIONS (3)
  - NASOPHARYNGITIS [None]
  - RASH GENERALISED [None]
  - URTICARIA [None]
